FAERS Safety Report 4629777-7 (Version None)
Quarter: 2005Q1

REPORT INFORMATION
  Report Type: 
  Country: None (occurrence: None)
  Receive Date: 20050107
  Receipt Date: 20041016
  Transmission Date: 20050727
  Serious: No
  Sender: FDA-Public Use
  Company Number: 235261K04USA

PATIENT
  Sex: Female

DRUGS (2)
  1. REBIF [Suspect]
     Indication: MULTIPLE SCLEROSIS
     Dosage: 8.8 MCG, SUBCUTANEOUS
     Route: 058
     Dates: start: 20041001
  2. NEURONTIN [Concomitant]

REACTIONS (5)
  - CHEST PAIN [None]
  - ERYTHEMA [None]
  - INFLUENZA LIKE ILLNESS [None]
  - RASH ERYTHEMATOUS [None]
  - SKIN EXFOLIATION [None]
